FAERS Safety Report 20761428 (Version 1)
Quarter: 2022Q2

REPORT INFORMATION
  Report Type: Spontaneous
  Country: FR (occurrence: FR)
  Receive Date: 20220428
  Receipt Date: 20220428
  Transmission Date: 20220720
  Serious: Yes (Hospitalization, Other)
  Sender: FDA-Public Use
  Company Number: FR-SA-2017SA216142

PATIENT
  Age: 84 Year
  Sex: Female
  Weight: 70 kg

DRUGS (14)
  1. IRINOTECAN [Suspect]
     Active Substance: IRINOTECAN
     Indication: Colorectal cancer metastatic
     Dosage: UNK UNK, QCY
     Route: 042
     Dates: start: 20171026, end: 20171026
  2. AFLIBERCEPT [Suspect]
     Active Substance: AFLIBERCEPT
     Indication: Colorectal cancer metastatic
     Dosage: UNK UNK, CYCLICAL
     Route: 042
     Dates: start: 20171026, end: 20171026
  3. FLUOROURACIL [Suspect]
     Active Substance: FLUOROURACIL
     Indication: Colorectal cancer metastatic
     Dosage: UNK UNK, QCY
     Route: 042
     Dates: start: 20171026, end: 20171026
  4. LEUCOVORIN [Suspect]
     Active Substance: LEUCOVORIN
     Indication: Colorectal cancer metastatic
     Dosage: UNK UNK, QCY
     Route: 042
     Dates: start: 20171026, end: 20171026
  5. DOLIPRANE [Concomitant]
     Active Substance: ACETAMINOPHEN
     Indication: Pain
     Dosage: 1 GRAM, EVERY OTHER DAY (1 G,UNK)
     Route: 048
  6. CANDESARTAN [Concomitant]
     Active Substance: CANDESARTAN
     Indication: Hypertension
     Dosage: 8 MILLIGRAM, ONCE A DAY (8 MG,QD)
     Route: 048
  7. NOVORAPID [Concomitant]
     Active Substance: INSULIN ASPART
     Indication: Diabetes mellitus
     Dosage: 100 DOSAGE FORM (100 IU/ML,UNK)
     Route: 058
  8. ONGLYZA [Concomitant]
     Active Substance: SAXAGLIPTIN HYDROCHLORIDE
     Indication: Diabetes mellitus
     Dosage: 5 MILLIGRAM, TWO TIMES A DAY
     Route: 048
  9. LANTUS [Concomitant]
     Active Substance: INSULIN GLARGINE
     Indication: Diabetes mellitus
     Dosage: 16 INTERNATIONAL UNIT, ONCE A DAY (16 IU,UNK)
     Route: 058
  10. LOPRAZOLAM [Concomitant]
     Active Substance: LOPRAZOLAM
     Indication: Insomnia
     Dosage: 1 MILLIGRAM, ONCE A DAY (1 MG,QD)
     Route: 048
  11. Fludex [Concomitant]
     Indication: Diuretic therapy
     Dosage: 1.5 MILLIGRAM, ONCE A DAY
     Route: 048
  12. CRESTOR [Concomitant]
     Active Substance: ROSUVASTATIN CALCIUM
     Indication: Hypercholesterolaemia
     Dosage: 5 MILLIGRAM, ONCE A DAY (5 MG,QD)
     Route: 048
  13. INIPOMP [Concomitant]
     Active Substance: PANTOPRAZOLE SODIUM
     Indication: Gastrooesophageal reflux disease
     Dosage: 40 MILLIGRAM, ONCE A DAY (5 MG,QD)
     Route: 048
  14. BISOPROLOL [Concomitant]
     Active Substance: BISOPROLOL
     Indication: Hypertension
     Dosage: 7.5 MILLIGRAM, ONCE A DAY (7.5 MG,QD)
     Route: 048

REACTIONS (1)
  - General physical health deterioration [Not Recovered/Not Resolved]

NARRATIVE: CASE EVENT DATE: 20171028
